FAERS Safety Report 18794015 (Version 5)
Quarter: 2021Q1

REPORT INFORMATION
  Report Type: Report from Study
  Country: IN (occurrence: IN)
  Receive Date: 20210127
  Receipt Date: 20210303
  Transmission Date: 20210419
  Serious: Yes (Death, Hospitalization)
  Sender: FDA-Public Use
  Company Number: IN-ROCHE-2738244

PATIENT
  Age: 72 Year
  Sex: Male
  Weight: 60.1 kg

DRUGS (5)
  1. AUGMENTIN [Concomitant]
     Active Substance: AMOXICILLIN\CLAVULANATE POTASSIUM
     Indication: COUGH
     Route: 048
     Dates: start: 20190718
  2. MIRABEGRON [Concomitant]
     Active Substance: MIRABEGRON
     Indication: HAEMATURIA
     Route: 048
     Dates: start: 20201016
  3. MACZORB PLUS [Concomitant]
     Indication: HAEMATURIA
     Route: 048
     Dates: start: 20201016
  4. ATEZOLIZUMAB. [Suspect]
     Active Substance: ATEZOLIZUMAB
     Indication: NON-SMALL CELL LUNG CANCER
     Dosage: DATE OF MOST RECENT DOSE OF ATEZOLIZUMAB PRIOR TO ONSET OF AE: 28/NOV/2020
     Route: 041
     Dates: start: 20190517
  5. ASCORIL [Concomitant]
     Indication: COUGH
     Route: 048
     Dates: start: 20190718

REACTIONS (2)
  - Superior vena cava syndrome [Fatal]
  - Cardiopulmonary failure [Fatal]

NARRATIVE: CASE EVENT DATE: 20201218
